FAERS Safety Report 8965420 (Version 1)
Quarter: 2012Q4

REPORT INFORMATION
  Report Type: 
  Country: CN (occurrence: CN)
  Receive Date: 20121213
  Receipt Date: 20121213
  Transmission Date: 20130627
  Serious: Yes (Hospitalization)
  Sender: FDA-Public Use
  Company Number: PHHY2012CN109016

PATIENT
  Age: 70 Year
  Sex: Male

DRUGS (1)
  1. VOTALIN [Suspect]
     Dosage: 1 DF vial
     Route: 061
     Dates: start: 20110425, end: 20111001

REACTIONS (4)
  - Lung infection [Recovering/Resolving]
  - Arthralgia [Recovering/Resolving]
  - Pyrexia [Recovering/Resolving]
  - Application site reaction [Recovering/Resolving]
